FAERS Safety Report 10503562 (Version 1)
Quarter: 2014Q4

REPORT INFORMATION
  Report Type: Spontaneous
  Country: JP (occurrence: None)
  Receive Date: 20141003
  Receipt Date: 20141003
  Transmission Date: 20150528
  Serious: Yes (Other)
  Sender: FDA-Public Use
  Company Number: COR_00085_2014

PATIENT
  Age: 79 Year
  Sex: Male

DRUGS (3)
  1. CISPLATIN (CISPLATIN) [Suspect]
     Active Substance: CISPLATIN
     Indication: SMALL CELL LUNG CANCER
     Dosage: [DAYS 1-3 OF A 28 DAY CYCLE] INTRAVENOUS (NOT OTHERWISE SPECIFIED] ) 4 WEEKS UNTIL NOT CONTINUING
  2. ETOPOSIDE (ETOPOSIDE) [Suspect]
     Active Substance: ETOPOSIDE
     Indication: SMALL CELL LUNG CANCER
     Dosage: (80 MG/M2 , [DAYS 1-3 OF A 28 DAY CYCLE] INTRAVENOUS (NOT OTHERWISE SPECIFIED) ) EVERY 4 WEEKS
     Route: 042
  3. RADIOTHERAPY [Suspect]
     Active Substance: RADIATION THERAPY
     Indication: SMALL CELL LUNG CANCER
     Dosage: ( [7.5/5 GY/FR]) (UNKNOWN (UNKNOWN UNTIL NOT CONTINUING)

REACTIONS (7)
  - Pyrexia [None]
  - Neutropenia [None]
  - Leukopenia [None]
  - Metastases to thorax [None]
  - Toxicity to various agents [None]
  - Large intestine perforation [None]
  - C-reactive protein increased [None]
